FAERS Safety Report 4372689-7 (Version None)
Quarter: 2004Q2

REPORT INFORMATION
  Report Type: 
  Country: None (occurrence: None)
  Receive Date: 20040608
  Receipt Date: 20040524
  Transmission Date: 20050107
  Serious: Yes (Hospitalization)
  Sender: FDA-Public Use
  Company Number: ES-JNJFOC-20040501177

PATIENT
  Age: 35 Year
  Sex: Male
  Weight: 90 kg

DRUGS (4)
  1. REMICADE [Suspect]
     Indication: CROHN'S DISEASE
     Route: 042
  2. IMUREL [Concomitant]
  3. CORTICOSTEROID NOS [Concomitant]
  4. ISONIAZID [Concomitant]

REACTIONS (35)
  - ACTIVATED PARTIAL THROMBOPLASTIN TIME PROLONGED [None]
  - ANURIA [None]
  - ASPARTATE AMINOTRANSFERASE INCREASED [None]
  - ASPIRATION [None]
  - BASE EXCESS NEGATIVE [None]
  - BLOOD ALBUMIN DECREASED [None]
  - BLOOD BICARBONATE DECREASED [None]
  - BLOOD BILIRUBIN INCREASED [None]
  - BLOOD CALCIUM DECREASED [None]
  - BLOOD CHLORIDE DECREASED [None]
  - BLOOD GLUCOSE INCREASED [None]
  - BLOOD MAGNESIUM DECREASED [None]
  - BLOOD OSMOLARITY DECREASED [None]
  - BLOOD POTASSIUM DECREASED [None]
  - CARDIOVASCULAR DISORDER [None]
  - COLLAPSE OF LUNG [None]
  - CYANOSIS [None]
  - DEPRESSED LEVEL OF CONSCIOUSNESS [None]
  - ENTEROCOLITIS [None]
  - GASTROENTERITIS [None]
  - GENERAL PHYSICAL HEALTH DETERIORATION [None]
  - HYPOVENTILATION [None]
  - HYPOVOLAEMIA [None]
  - LABORATORY TEST ABNORMAL [None]
  - METABOLIC DISORDER [None]
  - MYOGLOBIN BLOOD INCREASED [None]
  - PCO2 INCREASED [None]
  - PH BODY FLUID DECREASED [None]
  - PROTEIN TOTAL DECREASED [None]
  - PROTHROMBIN TIME PROLONGED [None]
  - RENAL FAILURE [None]
  - RESPIRATORY FAILURE [None]
  - SEPTIC SHOCK [None]
  - STUPOR [None]
  - URTICARIA PIGMENTOSA [None]
